FAERS Safety Report 16384820 (Version 2)
Quarter: 2019Q2

REPORT INFORMATION
  Report Type: Spontaneous
  Country: US (occurrence: US)
  Receive Date: 20190603
  Receipt Date: 20190606
  Transmission Date: 20190711
  Serious: No
  Sender: FDA-Public Use
  Company Number: US-009507513-1906USA000469

PATIENT
  Sex: Female

DRUGS (1)
  1. NEXPLANON [Suspect]
     Active Substance: ETONOGESTREL
     Dosage: 1 IMPLANT (1 ROD EVERY 3 YEARS)
     Route: 059
     Dates: start: 201809

REACTIONS (3)
  - Complication of device removal [Not Recovered/Not Resolved]
  - No adverse event [Unknown]
  - Complication associated with device [Recovered/Resolved]
